FAERS Safety Report 9717270 (Version 1)
Quarter: 2013Q4

REPORT INFORMATION
  Report Type: Report from Study
  Country: CA (occurrence: CA)
  Receive Date: 20131127
  Receipt Date: 20131127
  Transmission Date: 20140711
  Serious: Yes (Other)
  Sender: FDA-Public Use
  Company Number: CA-JNJFOC-20131116017

PATIENT
  Age: 45 Year
  Sex: Female
  Weight: 69 kg

DRUGS (2)
  1. STELARA [Suspect]
     Indication: PSORIASIS
     Route: 058
     Dates: start: 20110510
  2. AVELOX [Concomitant]
     Dosage: FOR 10 DAYS
     Route: 065
     Dates: start: 20131121

REACTIONS (1)
  - Pneumonia [Not Recovered/Not Resolved]
